FAERS Safety Report 4721812-0 (Version None)
Quarter: 2005Q3

REPORT INFORMATION
  Report Type: 
  Country: None (occurrence: None)
  Receive Date: 20050721
  Receipt Date: 20050425
  Transmission Date: 20060218
  Serious: No
  Sender: FDA-Public Use
  Company Number: US-BRISTOL-MYERS SQUIBB COMPANY-12945663

PATIENT
  Sex: Male

DRUGS (5)
  1. COUMADIN [Suspect]
     Indication: MITRAL VALVE REPLACEMENT
     Dosage: FROM 7.5 MG TO 6.0 MG ON SUNDAY, TUESDAY, WEDNESDAY AND THURSDAY, 5.0 MG ON MONDAY AND FRIDAY
     Dates: start: 20030101
  2. NIACIN [Concomitant]
  3. ASPIRIN [Concomitant]
  4. COREG [Concomitant]
  5. LIPITOR [Concomitant]

REACTIONS (2)
  - EPISTAXIS [None]
  - INTERNATIONAL NORMALISED RATIO INCREASED [None]
